FAERS Safety Report 7305420-3 (Version None)
Quarter: 2011Q1

REPORT INFORMATION
  Report Type: 
  Country: None (occurrence: None)
  Receive Date: 20110222
  Receipt Date: 20110216
  Transmission Date: 20110831
  Serious: Yes (Other)
  Sender: FDA-Public Use
  Company Number: US-PFIZER INC-2011034984

PATIENT
  Sex: Male
  Weight: 99.773 kg

DRUGS (5)
  1. CYMBALTA [Suspect]
     Indication: FIBROMYALGIA
     Dosage: UNK
  2. LYRICA [Suspect]
     Indication: FIBROMYALGIA
     Dosage: 75 MG, 1X/DAY
     Route: 048
     Dates: start: 20110207, end: 20110211
  3. HYDROCHLOROTHIAZIDE [Concomitant]
     Indication: NEPHROLITHIASIS
     Dosage: 5 MG, 1X/DAY
  4. TRAMADOL [Concomitant]
     Indication: PAIN
     Dosage: 50 MG, AS NEEDED
  5. CLONAZEPAM [Concomitant]
     Indication: RESTLESS LEGS SYNDROME
     Dosage: 1 MG, UNK

REACTIONS (8)
  - DYSURIA [None]
  - SOMNOLENCE [None]
  - DIARRHOEA HAEMORRHAGIC [None]
  - PAIN [None]
  - FLATULENCE [None]
  - ERUCTATION [None]
  - CRYING [None]
  - DIARRHOEA [None]
